FAERS Safety Report 9695716 (Version 1)
Quarter: 2013Q4

REPORT INFORMATION
  Report Type: Spontaneous
  Country: US (occurrence: None)
  Receive Date: 20131118
  Receipt Date: 20131118
  Transmission Date: 20140711
  Serious: Yes (Hospitalization)
  Sender: FDA-Public Use
  Company Number: None

PATIENT
  Age: 68 Year
  Sex: Male
  Weight: 98 kg

DRUGS (26)
  1. SIROLIMUS [Suspect]
     Indication: PLASMA CELL MYELOMA
     Dosage: 12MG DAY-2, 4MG DAY -1 TO 4
     Route: 048
     Dates: start: 20131106, end: 20131111
  2. HYDROXYCHLOROQUINE [Suspect]
     Indication: PLASMA CELL MYELOMA
     Route: 048
     Dates: start: 20131112
  3. ACETAMINOPHEN [Concomitant]
  4. ACYCLOVIR [Concomitant]
  5. ALTEPLASE [Concomitant]
  6. ALUMINUM-MAGNESIUM HYDROXIDE-SIMETHICONE [Concomitant]
  7. DIPHENHYDRAMINE [Concomitant]
  8. DOCUSATE SODIUM [Concomitant]
  9. FEXOFENADINE [Concomitant]
  10. FILGRASTIM [Concomitant]
  11. FLUCONAZOLE [Concomitant]
  12. GLUCOSAMIN [Concomitant]
  13. GLYCERIN MINERAL OIL TOPICAL [Concomitant]
  14. HALOPERIDOL [Concomitant]
  15. HEPARIN [Concomitant]
  16. LOPERAMIDE [Concomitant]
  17. LORAZEPAM [Concomitant]
  18. MAGNESIUM HYDROXIDE [Concomitant]
  19. MORPHINE [Concomitant]
  20. MULTIVITAMIN [Concomitant]
  21. OLANZAPINE [Concomitant]
  22. OMEPRAZOLE [Concomitant]
  23. POTASSIUM PHOSPHATE [Concomitant]
  24. PREGABALIN [Concomitant]
  25. VANCOMYCIN [Concomitant]
  26. ZOLPIDEM [Concomitant]

REACTIONS (2)
  - Staphylococcal infection [None]
  - Device related infection [None]
